FAERS Safety Report 23639090 (Version 1)
Quarter: 2024Q1

REPORT INFORMATION
  Report Type: Spontaneous
  Country: NL (occurrence: NL)
  Receive Date: 20240315
  Receipt Date: 20240315
  Transmission Date: 20240409
  Serious: Yes (Hospitalization)
  Sender: FDA-Public Use
  Company Number: None

PATIENT
  Age: 36 Year
  Sex: Male
  Weight: 96 kg

DRUGS (12)
  1. ELEXACAFTOR\IVACAFTOR\TEZACAFTOR [Suspect]
     Active Substance: ELEXACAFTOR\IVACAFTOR\TEZACAFTOR
     Indication: Cystic fibrosis
     Dosage: 75 MG IVA/ 50 MG TEZA/ 100 MG ELEXA
     Route: 048
     Dates: start: 20220111, end: 20220425
  2. KALYDECO [Suspect]
     Active Substance: IVACAFTOR
     Indication: Cystic fibrosis
     Dosage: TABLET, 150 MG (MILLIGRAM)
     Route: 048
  3. PREDNISONE [Suspect]
     Active Substance: PREDNISONE
     Indication: Asthma
     Dosage: 1X PER DAY 30MG
     Route: 065
     Dates: start: 20220216, end: 20220301
  4. AZTREONAM [Concomitant]
     Active Substance: AZTREONAM
     Dosage: ZAKJE (POEDER), 75 MG (MILLIGRAM)
     Route: 055
  5. ACETAMINOPHEN [Concomitant]
     Active Substance: ACETAMINOPHEN
     Dosage: TABLET, 1000 MG (MILLIGRAM)
  6. FLUCLOXACILLIN [Concomitant]
     Active Substance: FLUCLOXACILLIN
     Dosage: CAPSULE, 500 MG (MILLIGRAM)
  7. CREON [Concomitant]
     Active Substance: PANCRELIPASE AMYLASE\PANCRELIPASE LIPASE\PANCRELIPASE PROTEASE
     Dosage: MAAGSAPRESISTENTE CAPSULE, 8000/10000/600 FE
  8. COMBIVENT [Concomitant]
     Active Substance: ALBUTEROL SULFATE\IPRATROPIUM BROMIDE
     Dosage: VERNEVELVLOEISTOF, 1/0,2 MG/ML (MILLIGRAM PER MILLILITER)
     Route: 055
  9. FLUIMUCIL [Concomitant]
     Active Substance: ACETYLCYSTEINE
     Dosage: VERNEVELVLOEISTOF, 100 MG/ML (MILLIGRAM PER MILLILITER)
  10. FENOTEROL HYDROBROMIDE\IPRATROPIUM BROMIDE [Concomitant]
     Active Substance: FENOTEROL HYDROBROMIDE\IPRATROPIUM BROMIDE
     Dosage: AEROSOL, 50/20 ?G/DOSIS (MICROGRAM PER DOSIS)
  11. COLISTIN [Concomitant]
     Active Substance: COLISTIN
     Dosage: 1 PER DAY
  12. PIPERACILLIN SODIUM\TAZOBACTAM SODIUM [Concomitant]
     Active Substance: PIPERACILLIN SODIUM\TAZOBACTAM SODIUM
     Dosage: INFUSIEVLOEISTOF, 40/5 MG/ML (MILLIGRAM PER MILLILITER)

REACTIONS (1)
  - Mania [Recovering/Resolving]
